FAERS Safety Report 9070177 (Version 1)
Quarter: 2013Q1

REPORT INFORMATION
  Report Type: Report from Study
  Country: US (occurrence: US)
  Receive Date: 20130129
  Receipt Date: 20130129
  Transmission Date: 20140127
  Serious: No
  Sender: FDA-Public Use
  Company Number: US-ABBOTT-12P-163-0926588-00

PATIENT
  Age: 38 Year
  Sex: Female

DRUGS (7)
  1. HUMIRA 40 MG/0.8 ML PEN [Suspect]
     Indication: PSORIASIS
     Dates: start: 20120323, end: 20120323
  2. HUMIRA 40 MG/0.8 ML PEN [Suspect]
     Dates: start: 20120330, end: 20120330
  3. HUMIRA 40 MG/0.8 ML PEN [Suspect]
     Dates: start: 20120413
  4. LANTUS [Concomitant]
     Indication: TYPE 1 DIABETES MELLITUS
  5. NOVOLOG [Concomitant]
     Indication: TYPE 1 DIABETES MELLITUS
  6. CYMBALTA [Concomitant]
     Indication: DEPRESSION
  7. HYDROXYZINE [Concomitant]
     Indication: ANXIETY

REACTIONS (6)
  - Anxiety [Not Recovered/Not Resolved]
  - Pruritus [Not Recovered/Not Resolved]
  - Panic reaction [Not Recovered/Not Resolved]
  - Fatigue [Not Recovered/Not Resolved]
  - Formication [Not Recovered/Not Resolved]
  - Rash macular [Not Recovered/Not Resolved]
